FAERS Safety Report 25278981 (Version 2)
Quarter: 2025Q2

REPORT INFORMATION
  Report Type: Spontaneous
  Country: US (occurrence: US)
  Receive Date: 20250507
  Receipt Date: 20250602
  Transmission Date: 20250717
  Serious: Yes (Hospitalization, Other)
  Sender: JAZZ
  Company Number: US-JAZZ PHARMACEUTICALS-2025-US-010106

PATIENT
  Age: 18 Year
  Sex: Female

DRUGS (100)
  1. RYLAZE [Suspect]
     Active Substance: ASPARAGINASE ERWINIA CHRYSANTHEMI (RECOMBINANT)-RYWN
     Indication: T-cell type acute leukaemia
  2. RYLAZE [Suspect]
     Active Substance: ASPARAGINASE ERWINIA CHRYSANTHEMI (RECOMBINANT)-RYWN
     Dates: start: 20241016
  3. RYLAZE [Suspect]
     Active Substance: ASPARAGINASE ERWINIA CHRYSANTHEMI (RECOMBINANT)-RYWN
     Dosage: 50 MILLIGRAM PER SQUARE METER (70 MG)
     Dates: start: 20241018, end: 20241018
  4. RYLAZE [Suspect]
     Active Substance: ASPARAGINASE ERWINIA CHRYSANTHEMI (RECOMBINANT)-RYWN
     Dates: start: 20241024
  5. CHOLECALCIFEROL [Concomitant]
     Active Substance: CHOLECALCIFEROL
     Indication: Product used for unknown indication
  6. CHOLECALCIFEROL [Concomitant]
     Active Substance: CHOLECALCIFEROL
  7. CHOLECALCIFEROL [Concomitant]
     Active Substance: CHOLECALCIFEROL
  8. CHOLECALCIFEROL [Concomitant]
     Active Substance: CHOLECALCIFEROL
  9. CHOLECALCIFEROL [Concomitant]
     Active Substance: CHOLECALCIFEROL
  10. CHOLECALCIFEROL [Concomitant]
     Active Substance: CHOLECALCIFEROL
  11. CHOLECALCIFEROL [Concomitant]
     Active Substance: CHOLECALCIFEROL
  12. CHOLECALCIFEROL [Concomitant]
     Active Substance: CHOLECALCIFEROL
  13. CYTARABINE [Concomitant]
     Active Substance: CYTARABINE
     Indication: Product used for unknown indication
  14. CYTARABINE [Concomitant]
     Active Substance: CYTARABINE
  15. CYTARABINE [Concomitant]
     Active Substance: CYTARABINE
  16. CYTARABINE [Concomitant]
     Active Substance: CYTARABINE
  17. CYTARABINE [Concomitant]
     Active Substance: CYTARABINE
  18. CYTARABINE [Concomitant]
     Active Substance: CYTARABINE
  19. CYTARABINE [Concomitant]
     Active Substance: CYTARABINE
  20. CYTARABINE [Concomitant]
     Active Substance: CYTARABINE
  21. DOCUSATE [Concomitant]
     Active Substance: DOCUSATE
     Indication: Product used for unknown indication
  22. DOCUSATE [Concomitant]
     Active Substance: DOCUSATE
  23. DOCUSATE [Concomitant]
     Active Substance: DOCUSATE
  24. DOCUSATE [Concomitant]
     Active Substance: DOCUSATE
  25. DOCUSATE [Concomitant]
     Active Substance: DOCUSATE
  26. DOCUSATE [Concomitant]
     Active Substance: DOCUSATE
  27. DOCUSATE [Concomitant]
     Active Substance: DOCUSATE
  28. DOCUSATE [Concomitant]
     Active Substance: DOCUSATE
  29. FAMOTIDINE [Concomitant]
     Active Substance: FAMOTIDINE
     Indication: Product used for unknown indication
  30. FAMOTIDINE [Concomitant]
     Active Substance: FAMOTIDINE
  31. FAMOTIDINE [Concomitant]
     Active Substance: FAMOTIDINE
  32. FAMOTIDINE [Concomitant]
     Active Substance: FAMOTIDINE
  33. FAMOTIDINE [Concomitant]
     Active Substance: FAMOTIDINE
  34. FAMOTIDINE [Concomitant]
     Active Substance: FAMOTIDINE
  35. FAMOTIDINE [Concomitant]
     Active Substance: FAMOTIDINE
  36. FAMOTIDINE [Concomitant]
     Active Substance: FAMOTIDINE
  37. GRANISETRON [Concomitant]
     Active Substance: GRANISETRON
     Indication: Product used for unknown indication
  38. GRANISETRON [Concomitant]
     Active Substance: GRANISETRON
  39. GRANISETRON [Concomitant]
     Active Substance: GRANISETRON
  40. GRANISETRON [Concomitant]
     Active Substance: GRANISETRON
  41. GRANISETRON [Concomitant]
     Active Substance: GRANISETRON
  42. GRANISETRON [Concomitant]
     Active Substance: GRANISETRON
  43. GRANISETRON [Concomitant]
     Active Substance: GRANISETRON
  44. GRANISETRON [Concomitant]
     Active Substance: GRANISETRON
  45. LAMOTRIGINE [Concomitant]
     Active Substance: LAMOTRIGINE
     Indication: Product used for unknown indication
  46. LAMOTRIGINE [Concomitant]
     Active Substance: LAMOTRIGINE
  47. LAMOTRIGINE [Concomitant]
     Active Substance: LAMOTRIGINE
  48. LAMOTRIGINE [Concomitant]
     Active Substance: LAMOTRIGINE
  49. LAMOTRIGINE [Concomitant]
     Active Substance: LAMOTRIGINE
  50. LAMOTRIGINE [Concomitant]
     Active Substance: LAMOTRIGINE
  51. LAMOTRIGINE [Concomitant]
     Active Substance: LAMOTRIGINE
  52. LAMOTRIGINE [Concomitant]
     Active Substance: LAMOTRIGINE
  53. LEVETIRACETAM [Concomitant]
     Active Substance: LEVETIRACETAM
     Indication: Product used for unknown indication
  54. LEVETIRACETAM [Concomitant]
     Active Substance: LEVETIRACETAM
  55. LEVETIRACETAM [Concomitant]
     Active Substance: LEVETIRACETAM
  56. LEVETIRACETAM [Concomitant]
     Active Substance: LEVETIRACETAM
  57. LEVETIRACETAM [Concomitant]
     Active Substance: LEVETIRACETAM
  58. LEVETIRACETAM [Concomitant]
     Active Substance: LEVETIRACETAM
  59. LEVETIRACETAM [Concomitant]
     Active Substance: LEVETIRACETAM
  60. LEVETIRACETAM [Concomitant]
     Active Substance: LEVETIRACETAM
  61. LORAZEPAM [Concomitant]
     Active Substance: LORAZEPAM
     Indication: Product used for unknown indication
  62. LORAZEPAM [Concomitant]
     Active Substance: LORAZEPAM
  63. LORAZEPAM [Concomitant]
     Active Substance: LORAZEPAM
  64. LORAZEPAM [Concomitant]
     Active Substance: LORAZEPAM
  65. LORAZEPAM [Concomitant]
     Active Substance: LORAZEPAM
  66. LORAZEPAM [Concomitant]
     Active Substance: LORAZEPAM
  67. LORAZEPAM [Concomitant]
     Active Substance: LORAZEPAM
  68. LORAZEPAM [Concomitant]
     Active Substance: LORAZEPAM
  69. MERCAPTOPURINE [Concomitant]
     Active Substance: MERCAPTOPURINE
     Indication: Product used for unknown indication
  70. MERCAPTOPURINE [Concomitant]
     Active Substance: MERCAPTOPURINE
  71. MERCAPTOPURINE [Concomitant]
     Active Substance: MERCAPTOPURINE
  72. MERCAPTOPURINE [Concomitant]
     Active Substance: MERCAPTOPURINE
  73. MERCAPTOPURINE [Concomitant]
     Active Substance: MERCAPTOPURINE
  74. MERCAPTOPURINE [Concomitant]
     Active Substance: MERCAPTOPURINE
  75. MERCAPTOPURINE [Concomitant]
     Active Substance: MERCAPTOPURINE
  76. MERCAPTOPURINE [Concomitant]
     Active Substance: MERCAPTOPURINE
  77. VITAMINS [Concomitant]
     Active Substance: VITAMINS
     Indication: Product used for unknown indication
  78. VITAMINS [Concomitant]
     Active Substance: VITAMINS
  79. VITAMINS [Concomitant]
     Active Substance: VITAMINS
  80. VITAMINS [Concomitant]
     Active Substance: VITAMINS
  81. VITAMINS [Concomitant]
     Active Substance: VITAMINS
  82. VITAMINS [Concomitant]
     Active Substance: VITAMINS
  83. VITAMINS [Concomitant]
     Active Substance: VITAMINS
  84. VITAMINS [Concomitant]
     Active Substance: VITAMINS
  85. POLYETHYLENE GLYCOLS [Concomitant]
     Active Substance: POLYETHYLENE GLYCOLS
     Indication: Product used for unknown indication
  86. POLYETHYLENE GLYCOLS [Concomitant]
     Active Substance: POLYETHYLENE GLYCOLS
  87. POLYETHYLENE GLYCOLS [Concomitant]
     Active Substance: POLYETHYLENE GLYCOLS
  88. POLYETHYLENE GLYCOLS [Concomitant]
     Active Substance: POLYETHYLENE GLYCOLS
  89. POLYETHYLENE GLYCOLS [Concomitant]
     Active Substance: POLYETHYLENE GLYCOLS
  90. POLYETHYLENE GLYCOLS [Concomitant]
     Active Substance: POLYETHYLENE GLYCOLS
  91. POLYETHYLENE GLYCOLS [Concomitant]
     Active Substance: POLYETHYLENE GLYCOLS
  92. POLYETHYLENE GLYCOLS [Concomitant]
     Active Substance: POLYETHYLENE GLYCOLS
  93. SENNOSIDES A AND B [Concomitant]
     Active Substance: SENNOSIDES A AND B
     Indication: Product used for unknown indication
  94. SENNOSIDES A AND B [Concomitant]
     Active Substance: SENNOSIDES A AND B
  95. SENNOSIDES A AND B [Concomitant]
     Active Substance: SENNOSIDES A AND B
  96. SENNOSIDES A AND B [Concomitant]
     Active Substance: SENNOSIDES A AND B
  97. SENNOSIDES A AND B [Concomitant]
     Active Substance: SENNOSIDES A AND B
  98. SENNOSIDES A AND B [Concomitant]
     Active Substance: SENNOSIDES A AND B
  99. SENNOSIDES A AND B [Concomitant]
     Active Substance: SENNOSIDES A AND B
  100. SENNOSIDES A AND B [Concomitant]
     Active Substance: SENNOSIDES A AND B

REACTIONS (7)
  - Mental status changes [Recovered/Resolved]
  - Hyperammonaemia [Unknown]
  - Neutropenia [Unknown]
  - Enterococcal infection [Unknown]
  - Pyrexia [Unknown]
  - Fatigue [Unknown]
  - Escherichia infection [Unknown]

NARRATIVE: CASE EVENT DATE: 20241020
